FAERS Safety Report 10232452 (Version 1)
Quarter: 2014Q2

REPORT INFORMATION
  Report Type: Spontaneous
  Country: US (occurrence: US)
  Receive Date: 20140612
  Receipt Date: 20140612
  Transmission Date: 20141212
  Serious: No
  Sender: FDA-Public Use
  Company Number: US-JNJFOC-20140520057

PATIENT
  Age: 50 Year
  Sex: Female
  Weight: 120.66 kg

DRUGS (1)
  1. FENTANYL TRANSDERMAL SYSTEM [Suspect]
     Indication: CANCER PAIN
     Route: 062
     Dates: start: 20140523

REACTIONS (2)
  - Therapeutic response decreased [Unknown]
  - Wrong technique in drug usage process [Recovered/Resolved]
